FAERS Safety Report 15269832 (Version 2)
Quarter: 2018Q3

REPORT INFORMATION
  Report Type: Spontaneous
  Country: US (occurrence: US)
  Receive Date: 20180813
  Receipt Date: 20180814
  Transmission Date: 20181010
  Serious: Yes (Hospitalization, Other)
  Sender: FDA-Public Use
  Company Number: US-ACCORD-070706

PATIENT
  Age: 48 Year
  Sex: Male

DRUGS (4)
  1. PREDNISONE. [Suspect]
     Active Substance: PREDNISONE
     Indication: CARDIAC SARCOIDOSIS
  2. MYCOPHENOLIC ACID. [Suspect]
     Active Substance: MYCOPHENOLIC ACID
     Indication: CARDIAC SARCOIDOSIS
  3. VANCOMYCIN [Concomitant]
     Active Substance: VANCOMYCIN
  4. PIPERACILLIN SODIUM/TAZOBACTAM SODIUM [Concomitant]

REACTIONS (5)
  - Pericarditis infective [Recovered/Resolved]
  - Cardiac tamponade [Recovered/Resolved]
  - Propionibacterium infection [Recovering/Resolving]
  - Ischaemia [Recovered/Resolved]
  - Off label use [Unknown]
